FAERS Safety Report 19630495 (Version 1)
Quarter: 2021Q3

REPORT INFORMATION
  Report Type: Spontaneous
  Country: US (occurrence: US)
  Receive Date: 20210728
  Receipt Date: 20210728
  Transmission Date: 20211014
  Serious: No
  Sender: FDA-Public Use
  Company Number: US-SA-2021SA245507

PATIENT
  Sex: Female

DRUGS (26)
  1. BOTOX [Concomitant]
     Active Substance: ONABOTULINUMTOXINA
  2. EPINEPHRINE. [Concomitant]
     Active Substance: EPINEPHRINE
     Dosage: 0.15 MG/ 03 AUTO INJCT
  3. SINGULAIR [Concomitant]
     Active Substance: MONTELUKAST SODIUM
  4. ALLEGRA ALLERGY [Concomitant]
     Active Substance: FEXOFENADINE HYDROCHLORIDE
  5. XYZAL [Concomitant]
     Active Substance: LEVOCETIRIZINE DIHYDROCHLORIDE
  6. TRILEPTAL [Concomitant]
     Active Substance: OXCARBAZEPINE
  7. CALCITRIOL. [Concomitant]
     Active Substance: CALCITRIOL
  8. REVATIO [Concomitant]
     Active Substance: SILDENAFIL CITRATE
  9. CELEXA [CELECOXIB] [Concomitant]
     Active Substance: CELECOXIB
  10. CITRACAL + D [CALCIUM CITRATE;COLECALCIFEROL] [Concomitant]
     Active Substance: CALCIUM CITRATE\CHOLECALCIFEROL
     Dosage: 250 MG? 200
  11. REMODULIN [Concomitant]
     Active Substance: TREPROSTINIL
     Dosage: VIAL
  12. TRACLEER [Concomitant]
     Active Substance: BOSENTAN
  13. PROTONIX [OMEPRAZOLE] [Concomitant]
     Active Substance: OMEPRAZOLE
  14. MAGNESIUM [Concomitant]
     Active Substance: MAGNESIUM
  15. AUBAGIO [Suspect]
     Active Substance: TERIFLUNOMIDE
     Indication: MULTIPLE SCLEROSIS
     Dosage: 14 MG, QD
     Route: 048
     Dates: start: 2017, end: 2019
  16. COUMADIN [Concomitant]
     Active Substance: WARFARIN SODIUM
  17. RIBOFLAVIN [Concomitant]
     Active Substance: RIBOFLAVIN
  18. NEURONTIN [Concomitant]
     Active Substance: GABAPENTIN
  19. IRON [Concomitant]
     Active Substance: IRON
     Dosage: 325 (65) MG TABLET
  20. ALDACTONE [Concomitant]
     Active Substance: SPIRONOLACTONE
  21. SYNTHROID [Concomitant]
     Active Substance: LEVOTHYROXINE SODIUM
  22. XANAX [Concomitant]
     Active Substance: ALPRAZOLAM
  23. OXYGEN. [Concomitant]
     Active Substance: OXYGEN
  24. VITAMIN B12 [VITAMIN B12 NOS] [Concomitant]
     Active Substance: CYANOCOBALAMIN
     Dosage: 5000 MCG TAB RAPIDS
  25. HYDROCHLOROTHIAZIDE. [Concomitant]
     Active Substance: HYDROCHLOROTHIAZIDE
  26. VITAMIN D3 [Concomitant]
     Active Substance: CHOLECALCIFEROL

REACTIONS (1)
  - Seasonal allergy [Unknown]
